FAERS Safety Report 13097380 (Version 1)
Quarter: 2017Q1

REPORT INFORMATION
  Report Type: Spontaneous
  Country: AU (occurrence: AU)
  Receive Date: 20170109
  Receipt Date: 20170109
  Transmission Date: 20170428
  Serious: Yes (Hospitalization)
  Sender: FDA-Public Use
  Company Number: AU-APOTEX-2017AP005000

PATIENT
  Age: 85 Year
  Sex: Male

DRUGS (1)
  1. APO-DONEPEZIL [Suspect]
     Active Substance: DONEPEZIL
     Indication: DEMENTIA
     Dosage: 5 MG, QD
     Route: 065

REACTIONS (1)
  - Sexually inappropriate behaviour [Recovered/Resolved]
